FAERS Safety Report 6568119-7 (Version None)
Quarter: 2010Q1

REPORT INFORMATION
  Report Type: 
  Country: None (occurrence: None)
  Receive Date: 20100203
  Receipt Date: 20100120
  Transmission Date: 20100710
  Serious: Yes (Life-Threatening, Hospitalization)
  Sender: FDA-Public Use
  Company Number: IE-MEDIMMUNE-MEDI-0009912

PATIENT
  Sex: Male

DRUGS (3)
  1. SYNAGIS [Suspect]
     Route: 030
     Dates: start: 20091030, end: 20091101
  2. FERROUS SULFATE TAB [Concomitant]
     Route: 048
  3. KAPSOVIT [Concomitant]
     Indication: VITAMIN SUPPLEMENTATION
     Route: 048

REACTIONS (3)
  - BRONCHIOLITIS [None]
  - MECHANICAL VENTILATION [None]
  - RESPIRATORY SYNCYTIAL VIRUS INFECTION [None]
